FAERS Safety Report 4408471-1 (Version None)
Quarter: 2004Q3

REPORT INFORMATION
  Report Type: 
  Country: None (occurrence: None)
  Receive Date: 20040723
  Receipt Date: 20040712
  Transmission Date: 20050211
  Serious: Yes (Other)
  Sender: FDA-Public Use
  Company Number: HQWYE080214JUL04

PATIENT
  Age: 48 Year
  Sex: Female

DRUGS (3)
  1. INDERAL [Suspect]
     Dates: start: 20040201, end: 20040101
  2. METHIMAZOLE (THIAMAZOLE) [Concomitant]
  3. IODINE (IODINE) [Concomitant]

REACTIONS (5)
  - ANGINA PECTORIS [None]
  - BASEDOW'S DISEASE [None]
  - CONDITION AGGRAVATED [None]
  - ELECTROCARDIOGRAM ST SEGMENT ELEVATION [None]
  - LABORATORY TEST ABNORMAL [None]
